FAERS Safety Report 13141712 (Version 1)
Quarter: 2017Q1

REPORT INFORMATION
  Report Type: Spontaneous
  Country: CN (occurrence: CN)
  Receive Date: 20170123
  Receipt Date: 20170123
  Transmission Date: 20170428
  Serious: Yes (Life-Threatening)
  Sender: FDA-Public Use
  Company Number: CN-SA-2017SA008264

PATIENT
  Age: 64 Year
  Sex: Female
  Weight: 60 kg

DRUGS (12)
  1. OXALIPLATIN. [Suspect]
     Active Substance: OXALIPLATIN
     Indication: NEOPLASM
     Dosage: DOSE:150 UNIT(S)
     Route: 041
     Dates: start: 20160503, end: 20160503
  2. PALONOSETRON HYDROCHLORIDE. [Concomitant]
     Active Substance: PALONOSETRON HYDROCHLORIDE
     Indication: VOMITING
     Route: 041
     Dates: start: 20160502, end: 20160504
  3. GLUTATHIONE [Concomitant]
     Active Substance: GLUTATHIONE
     Indication: PROPHYLAXIS
     Route: 041
     Dates: start: 20160419, end: 20160510
  4. LANSOPRAZOLE. [Concomitant]
     Active Substance: LANSOPRAZOLE
     Indication: PROPHYLAXIS
     Route: 041
     Dates: start: 20160419, end: 20160510
  5. FILGRASTIM [Concomitant]
     Active Substance: FILGRASTIM
     Indication: COLONY STIMULATING FACTOR THERAPY
     Route: 058
     Dates: start: 20160424, end: 20160424
  6. PACLITAXEL. [Suspect]
     Active Substance: PACLITAXEL
     Indication: NEOPLASM
     Route: 041
     Dates: start: 20160502, end: 20160502
  7. DEXAMETHASONE ACETATE [Concomitant]
     Active Substance: DEXAMETHASONE ACETATE
     Indication: TOXICITY TO VARIOUS AGENTS
     Route: 048
     Dates: start: 20160501, end: 20160501
  8. OXALIPLATIN. [Suspect]
     Active Substance: OXALIPLATIN
     Indication: NEOPLASM
     Dosage: DOSE:150 UNIT(S)
     Route: 041
     Dates: start: 20160504, end: 20160504
  9. ENDOSTAR [Concomitant]
     Active Substance: ENDOSTATIN
     Indication: NEOPLASM
     Route: 041
     Dates: start: 20160421, end: 20160505
  10. CARBOPLATIN. [Concomitant]
     Active Substance: CARBOPLATIN
     Indication: NEOPLASM
     Route: 041
     Dates: start: 20160502, end: 20160502
  11. TROPISETRON HYDROCHLORIDE [Concomitant]
     Active Substance: TROPISETRON HYDROCHLORIDE
     Indication: VOMITING
     Route: 042
     Dates: start: 20160502, end: 20160504
  12. THYMOPENTIN [Concomitant]
     Active Substance: THYMOPENTIN
     Indication: ADJUVANT THERAPY
     Route: 058
     Dates: start: 20160419, end: 20160510

REACTIONS (1)
  - Bone marrow failure [Recovering/Resolving]

NARRATIVE: CASE EVENT DATE: 20160505
